FAERS Safety Report 24262384 (Version 1)
Quarter: 2024Q3

REPORT INFORMATION
  Report Type: Spontaneous
  Country: IN (occurrence: IN)
  Receive Date: 20240829
  Receipt Date: 20240829
  Transmission Date: 20241016
  Serious: Yes (Other)
  Sender: GRANULES INDIA
  Company Number: IN-GRANULES-IN-2024GRALIT00373

PATIENT
  Age: 16 Year
  Sex: Male

DRUGS (6)
  1. ACETAMINOPHEN [Suspect]
     Active Substance: ACETAMINOPHEN
     Indication: Pyrexia
     Route: 065
     Dates: start: 20220423, end: 20220424
  2. ACETAMINOPHEN [Suspect]
     Active Substance: ACETAMINOPHEN
     Indication: Upper respiratory tract infection
  3. NIMESULIDE [Suspect]
     Active Substance: NIMESULIDE
     Indication: Pyrexia
     Route: 065
     Dates: start: 20220423, end: 20220424
  4. NIMESULIDE [Suspect]
     Active Substance: NIMESULIDE
     Indication: Upper respiratory tract infection
  5. CEFPODOXIME\CLAVULANIC ACID [Suspect]
     Active Substance: CEFPODOXIME\CLAVULANIC ACID
     Indication: Pyrexia
     Dosage: 100 MG+62.5 MG
     Route: 065
     Dates: start: 20220423, end: 20220424
  6. CEFPODOXIME\CLAVULANIC ACID [Suspect]
     Active Substance: CEFPODOXIME\CLAVULANIC ACID
     Indication: Upper respiratory tract infection

REACTIONS (2)
  - Toxic epidermal necrolysis [Recovered/Resolved]
  - Product use in unapproved indication [Unknown]

NARRATIVE: CASE EVENT DATE: 20220101
